FAERS Safety Report 20495886 (Version 2)
Quarter: 2022Q1

REPORT INFORMATION
  Report Type: Report from Study
  Country: GB (occurrence: GB)
  Receive Date: 20220221
  Receipt Date: 20220303
  Transmission Date: 20220424
  Serious: Yes (Hospitalization)
  Sender: FDA-Public Use
  Company Number: GB-JCAR017-FOL-001-2001004-20211119-0001SG

PATIENT
  Age: 49 Year
  Sex: Male

DRUGS (7)
  1. LISOCABTAGENE MARALEUCEL [Suspect]
     Active Substance: LISOCABTAGENE MARALEUCEL
     Indication: Follicular lymphoma
     Dosage: 100 10^6 CAR+ T CELLS X ONCE
     Route: 042
     Dates: start: 20210908, end: 20210908
  2. CYCLOPHOSPHAMIDE [Suspect]
     Active Substance: CYCLOPHOSPHAMIDE
     Indication: Follicular lymphoma
     Dosage: 600 MG X 1 X 1 DAYS
     Route: 042
     Dates: start: 20210903, end: 20210905
  3. FLUDARABINE [Suspect]
     Active Substance: FLUDARABINE PHOSPHATE
     Indication: Follicular lymphoma
     Dosage: 45 MG X 1 X 1 DAYS
     Route: 042
     Dates: start: 20210903, end: 20210905
  4. ACYCLOVIR [Concomitant]
     Active Substance: ACYCLOVIR
     Indication: Prophylaxis
     Dosage: 200 MG X 3 X 1 DAYS
     Route: 048
     Dates: start: 20210903
  5. AMITRIPTYLINE [Concomitant]
     Active Substance: AMITRIPTYLINE
     Indication: Sciatica
     Dosage: 10 MG X 1 X 1 DAYS
     Route: 048
     Dates: start: 20211001
  6. ENSURE [Concomitant]
     Active Substance: AMINO ACIDS\DEXTROSE\ELECTROLYTES NOS\SOYBEAN OIL\VITAMINS
     Indication: Nutritional supplementation
     Dosage: 1 BOTTLE X 2 X 1 DAYS
     Route: 048
     Dates: start: 20211001
  7. MEROPENEM [Concomitant]
     Active Substance: MEROPENEM
     Indication: Prophylaxis
     Dosage: UNK G X 1 X 8 HOURS
     Route: 042
     Dates: start: 20211115, end: 20211124

REACTIONS (1)
  - COVID-19 pneumonia [Recovered/Resolved]

NARRATIVE: CASE EVENT DATE: 20211115
